FAERS Safety Report 9093526 (Version 1)
Quarter: 2013Q1

REPORT INFORMATION
  Report Type: Report from Study
  Country: US (occurrence: US)
  Receive Date: 20130131
  Receipt Date: 20130131
  Transmission Date: 20140127
  Serious: No
  Sender: FDA-Public Use
  Company Number: US-ABBOTT-12P-163-0919152-00

PATIENT
  Age: 44 Year
  Sex: Male

DRUGS (9)
  1. HUMIRA [Suspect]
     Indication: PSORIASIS
     Route: 058
     Dates: start: 2011
  2. HUMIRA [Suspect]
     Dates: start: 2012
  3. GLUCOPHAGE [Concomitant]
     Indication: DIABETES MELLITUS
     Dosage: 500 MG X 3 TABS DAILY
  4. HYDROCHLOROTHIAZIDE [Concomitant]
     Indication: BLOOD PRESSURE FLUCTUATION
     Dosage: 25 MG DAILY
  5. KLOR-CON [Concomitant]
     Indication: BLOOD POTASSIUM DECREASED
     Dosage: 20 MEQ DAILY
  6. AMITRIPTYLINE [Concomitant]
     Indication: INSOMNIA
     Dosage: 25 MG DAILY
  7. IBUPROFEN [Concomitant]
     Indication: PAIN
  8. SKELAXIN [Concomitant]
     Indication: PAIN
  9. UNKNOWN FOAM (NAME UNKNOWN) [Concomitant]
     Indication: PSORIASIS
     Route: 061

REACTIONS (2)
  - Blood testosterone decreased [Unknown]
  - Psoriasis [Recovering/Resolving]
